FAERS Safety Report 18069665 (Version 2)
Quarter: 2020Q3

REPORT INFORMATION
  Report Type: Spontaneous
  Country: CO (occurrence: CO)
  Receive Date: 20200726
  Receipt Date: 20200809
  Transmission Date: 20201103
  Serious: No
  Sender: FDA-Public Use
  Company Number: CO-AMGEN-COLSP2020062888

PATIENT
  Age: 69 Year
  Sex: Female

DRUGS (2)
  1. NEULASTA [Suspect]
     Active Substance: PEGFILGRASTIM
     Indication: PRODUCT USED FOR UNKNOWN INDICATION
     Dosage: 6 MILLIGRAM
     Route: 065
     Dates: start: 20200218
  2. NEULASTA [Suspect]
     Active Substance: PEGFILGRASTIM
     Dosage: 6 MILLIGRAM
     Route: 065

REACTIONS (2)
  - Drug dose omission by device [Unknown]
  - Device material issue [Unknown]

NARRATIVE: CASE EVENT DATE: 20200408
